FAERS Safety Report 11968791 (Version 1)
Quarter: 2016Q1

REPORT INFORMATION
  Report Type: Spontaneous
  Country: US (occurrence: None)
  Receive Date: 20160126
  Receipt Date: 20160126
  Transmission Date: 20160526
  Serious: Yes (Death, Hospitalization)
  Sender: FDA-Public Use
  Company Number: None

PATIENT
  Age: 1 Year
  Sex: Female
  Weight: 13.9 kg

DRUGS (4)
  1. DAUNORUBICIN [Suspect]
     Active Substance: DAUNORUBICIN
     Dates: end: 20160107
  2. VINCRISTINE SULFATE. [Suspect]
     Active Substance: VINCRISTINE SULFATE
     Dates: end: 20160107
  3. ONCASPAR [Suspect]
     Active Substance: PEGASPARGASE
     Dates: end: 20160110
  4. DEXAMETHASONE. [Suspect]
     Active Substance: DEXAMETHASONE
     Dates: end: 20160117

REACTIONS (11)
  - Bacillus test positive [None]
  - Cardiac arrest [None]
  - Neutropenia [None]
  - Respiratory failure [None]
  - Apnoea [None]
  - Septic embolus [None]
  - Diabetes insipidus [None]
  - Disseminated intravascular coagulation [None]
  - Hypotension [None]
  - Unresponsive to stimuli [None]
  - Ischaemic cerebral infarction [None]

NARRATIVE: CASE EVENT DATE: 20160115
